FAERS Safety Report 10896347 (Version 1)
Quarter: 2015Q1

REPORT INFORMATION
  Report Type: Spontaneous
  Country: US (occurrence: None)
  Receive Date: 20150302
  Receipt Date: 20150302
  Transmission Date: 20150721
  Serious: Yes (Other)
  Sender: FDA-Public Use
  Company Number: None

PATIENT
  Age: 34 Year
  Sex: Female

DRUGS (2)
  1. AMPHETAMINE SALTS [Suspect]
     Active Substance: AMPHETAMINE ASPARTATE\AMPHETAMINE SULFATE\DEXTROAMPHETAMINE SACCHARATE\DEXTROAMPHETAMINE SULFATE
     Indication: ATTENTION DEFICIT/HYPERACTIVITY DISORDER
     Dosage: 1 PILL
     Route: 048
     Dates: start: 20150102, end: 20150224
  2. ATTEROL [Concomitant]

REACTIONS (6)
  - Migraine [None]
  - Drug ineffective [None]
  - Product quality issue [None]
  - Fatigue [None]
  - Activities of daily living impaired [None]
  - Product substitution issue [None]

NARRATIVE: CASE EVENT DATE: 20150224
